FAERS Safety Report 5103146-8 (Version None)
Quarter: 2006Q3

REPORT INFORMATION
  Report Type: 
  Country: None (occurrence: None)
  Receive Date: 20060908
  Receipt Date: 20060901
  Transmission Date: 20061208
  Serious: Yes (Other)
  Sender: FDA-Public Use
  Company Number: 2006105730

PATIENT
  Age: 62 Year
  Sex: Female

DRUGS (1)
  1. XALATAN [Suspect]
     Indication: GLAUCOMA
     Dosage: 50MKG (1 IN 1 D), TOPICAL
     Route: 061
     Dates: start: 20060710

REACTIONS (1)
  - INTRAOCULAR PRESSURE INCREASED [None]
